FAERS Safety Report 26140006 (Version 2)
Quarter: 2025Q4

REPORT INFORMATION
  Report Type: Spontaneous
  Country: TR (occurrence: TR)
  Receive Date: 20251210
  Receipt Date: 20251231
  Transmission Date: 20260118
  Serious: Yes (Life-Threatening, Hospitalization)
  Sender: TEVA
  Company Number: TR-TEVA-VS-3399715

PATIENT
  Age: 35 Year
  Sex: Male

DRUGS (12)
  1. CAPECITABINE [Suspect]
     Active Substance: CAPECITABINE
     Indication: Rectal adenocarcinoma
     Dosage: ON DAYS 1 14; REPEATED EVERY 21 DAYS.
     Route: 048
     Dates: start: 2023
  2. GANCICLOVIR [Concomitant]
     Active Substance: GANCICLOVIR
     Indication: Rash vesicular
     Route: 065
  3. VANCOMYCIN [Concomitant]
     Active Substance: VANCOMYCIN
     Indication: Evidence based treatment
     Route: 048
  4. METRONIDAZOLE [Concomitant]
     Active Substance: METRONIDAZOLE
     Indication: Evidence based treatment
     Route: 065
  5. NYSTATIN [Concomitant]
     Active Substance: NYSTATIN
     Indication: Candida infection
     Route: 048
  6. PIPERACILLIN AND TAZOBACTAM [Concomitant]
     Active Substance: PIPERACILLIN SODIUM\TAZOBACTAM SODIUM
     Indication: Evidence based treatment
     Route: 065
  7. SODIUM CHLORIDE [Concomitant]
     Active Substance: SODIUM CHLORIDE
     Indication: Evidence based treatment
     Route: 042
  8. MEROPENEM [Concomitant]
     Active Substance: MEROPENEM
     Indication: Evidence based treatment
     Route: 065
  9. FLUCONAZOLE [Concomitant]
     Active Substance: FLUCONAZOLE
     Indication: Antifungal prophylaxis
     Route: 065
  10. GLUTAMINE [Concomitant]
     Active Substance: GLUTAMINE
     Indication: Evidence based treatment
     Route: 065
  11. LINEZOLID [Concomitant]
     Active Substance: LINEZOLID
     Indication: Evidence based treatment
     Route: 065
  12. OXALIPLATIN [Suspect]
     Active Substance: OXALIPLATIN
     Indication: Rectal adenocarcinoma
     Dosage: ON DAY 1; REPEATED EVERY 21DAYS
     Route: 042
     Dates: start: 2023

REACTIONS (12)
  - Stomatitis [Recovered/Resolved]
  - Toxicity to various agents [Recovered/Resolved]
  - Thrombocytopenia [Recovered/Resolved]
  - Electrolyte imbalance [Recovered/Resolved]
  - International normalised ratio increased [Recovered/Resolved]
  - Diarrhoea [Recovered/Resolved]
  - Hyperbilirubinaemia [Recovered/Resolved]
  - Neutropenia [Recovered/Resolved]
  - Abdominal pain [Recovered/Resolved]
  - Haemodynamic instability [Recovered/Resolved]
  - Anaemia [Recovered/Resolved]
  - Acute kidney injury [Recovered/Resolved]
